FAERS Safety Report 7946562-9 (Version None)
Quarter: 2011Q4

REPORT INFORMATION
  Report Type: 
  Country: None (occurrence: None)
  Receive Date: 20111129
  Receipt Date: 20111114
  Transmission Date: 20120403
  Serious: Yes (Other)
  Sender: FDA-Public Use
  Company Number: NO-ARROW GEN-2011-19517

PATIENT
  Age: 73 Year
  Sex: Female

DRUGS (1)
  1. ALENDRONATE SODIUM [Suspect]
     Indication: OSTEOPOROSIS
     Dosage: UNK
     Route: 065
     Dates: start: 19940101

REACTIONS (5)
  - FEMUR FRACTURE [None]
  - FEMORAL NECK FRACTURE [None]
  - PAIN IN EXTREMITY [None]
  - OSTEOPENIA [None]
  - ULNA FRACTURE [None]
